FAERS Safety Report 4455725-9 (Version None)
Quarter: 2004Q3

REPORT INFORMATION
  Report Type: 
  Country: None (occurrence: None)
  Receive Date: 20040922
  Receipt Date: 20040913
  Transmission Date: 20050211
  Serious: Yes (Hospitalization, Congenital Anomaly)
  Sender: FDA-Public Use
  Company Number: ES-BRISTOL-MYERS SQUIBB COMPANY-12700100

PATIENT
  Age: 24 Year
  Sex: Female
  Weight: 60 kg

DRUGS (2)
  1. KARVEZIDE [Suspect]
     Indication: DIABETIC NEPHROPATHY
     Route: 048
     Dates: start: 20020901, end: 20040701
  2. LANTUS [Suspect]
     Indication: DIABETES MELLITUS
     Route: 058
     Dates: start: 20040204, end: 20040630

REACTIONS (3)
  - ABORTION INDUCED [None]
  - ANENCEPHALY [None]
  - PREGNANCY [None]
